FAERS Safety Report 4277883-1 (Version None)
Quarter: 2004Q1

REPORT INFORMATION
  Report Type: 
  Country: None (occurrence: None)
  Receive Date: 20040121
  Receipt Date: 20040103
  Transmission Date: 20041129
  Serious: Yes (Hospitalization)
  Sender: FDA-Public Use
  Company Number: EWC040137555

PATIENT
  Age: 66 Year
  Sex: Male

DRUGS (7)
  1. XIGRIS [Suspect]
     Indication: SEPSIS
     Dosage: 24 UG/KG/HR
     Dates: start: 20031229, end: 20040102
  2. IMIPENEM [Concomitant]
  3. TEICOPLANIN [Concomitant]
  4. AMIKACIN [Concomitant]
  5. NOREPINEPHRINE [Concomitant]
  6. DOBUTAMINE HCL [Concomitant]
  7. ADRENALINE [Concomitant]

REACTIONS (4)
  - BLOOD BILIRUBIN INCREASED [None]
  - BLOOD PRESSURE DECREASED [None]
  - DYSPNOEA [None]
  - PYREXIA [None]
